FAERS Safety Report 25215659 (Version 1)
Quarter: 2025Q2

REPORT INFORMATION
  Report Type: Spontaneous
  Country: US (occurrence: US)
  Receive Date: 20250418
  Receipt Date: 20250418
  Transmission Date: 20250717
  Serious: Yes (Hospitalization, Other)
  Sender: BRISTOL-MYERS SQUIBB COMPANY
  Company Number: US-BRISTOL-MYERS SQUIBB COMPANY-2025-057777

PATIENT
  Age: 95 Year
  Sex: Female
  Weight: 34.38 kg

DRUGS (17)
  1. ELIQUIS [Suspect]
     Active Substance: APIXABAN
     Indication: Product used for unknown indication
     Route: 048
     Dates: start: 20210503
  2. SPIRONOLACTONE [Concomitant]
     Active Substance: SPIRONOLACTONE
     Indication: Product used for unknown indication
     Route: 048
  3. DILTIAZEM [Concomitant]
     Active Substance: DILTIAZEM
     Indication: Product used for unknown indication
     Dosage: DILTIAZEM 30 MG ORAL TABLET HX, T TAB(S) ORALLY 4 TIMES A DAY - INSTRUCTIONS: HOLD FOR HR {55
     Route: 048
  4. METOPROLOL SUCCINATE [Concomitant]
     Active Substance: METOPROLOL SUCCINATE
     Indication: Hypertension
     Dosage: METOPROLOL SUCCINATE ER 100 MG ORAL TABLET, EXENDED RELEASE: HX, 0,5 TAH(S) ORALLY ONCE A DAY
     Route: 048
  5. FUROSEMIDE [Concomitant]
     Active Substance: FUROSEMIDE
     Indication: Product used for unknown indication
     Route: 048
     Dates: start: 20200312
  6. ALBUTEROL SULFATE [Concomitant]
     Active Substance: ALBUTEROL SULFATE
     Indication: Dyspnoea
  7. ALBUTEROL SULFATE [Concomitant]
     Active Substance: ALBUTEROL SULFATE
     Indication: Wheezing
  8. ALBUTEROL\IPRATROPIUM [Concomitant]
     Active Substance: ALBUTEROL\IPRATROPIUM
     Indication: Product used for unknown indication
  9. BEVESPI AEROSPHERE [Concomitant]
     Active Substance: FORMOTEROL FUMARATE\GLYCOPYRROLATE
     Indication: Product used for unknown indication
     Dosage: 9 MCG-4.8 MCG/INH INHALATION AEROSOL: HX, 2 PUFF(S) INHALED ONCE A DAY?NHALE 2 PUFF(S) TWICE A DAY B
  10. IMDUR [Concomitant]
     Active Substance: ISOSORBIDE MONONITRATE
     Indication: Hypertension
     Dosage: METOPROLOL SUCCINATE ER 100 MG ORAL TABLET, EXENDED RELEASE: HX, 0,5 TAH(S) ORALLY ONCE A DAY
     Route: 048
  11. CETIRIZINE HYDROCHLORIDE [Concomitant]
     Active Substance: CETIRIZINE HYDROCHLORIDE
     Indication: Sleep disorder
     Route: 048
  12. FLONASE ALLERGY RELIEF [Concomitant]
     Active Substance: FLUTICASONE PROPIONATE
     Indication: Product used for unknown indication
     Dosage: 50 MCG/ACTUATION NASAL SPRAY,SUSPENSION?SPRAY 2 SPRAYS EVERY DAY BY INTRANASAL ROUTE. AS NEEDED
     Route: 045
  13. FLUOCINOLONE [Concomitant]
     Active Substance: FLUOCINOLONE
     Indication: Product used for unknown indication
     Dosage: 0.01 % SCALP OIL AND SHOWER CAP?APPLY 1 ML BY SCALP ROUTE 2 (TWO) TIMES A WEEK. WET HAIR AND SCALP T
     Route: 061
  14. ISOSORBIDE MONONITRATE [Concomitant]
     Active Substance: ISOSORBIDE MONONITRATE
     Indication: Product used for unknown indication
     Dosage: ER 30 MG TABLET,EXTENDED RELEASE 24 HR?TAKE 1 TABLET BY MOUTH ONCE DAILY
     Route: 048
  15. VITAMINS [Concomitant]
     Active Substance: VITAMINS
     Indication: Product used for unknown indication
     Route: 048
     Dates: start: 20170517
  16. TIOTROPIUM BROMIDE [Concomitant]
     Active Substance: TIOTROPIUM BROMIDE
     Indication: Product used for unknown indication
     Dosage: NHALE 1 CAPSULE(S) EVERY DAY BY INHALATION ROUTE.
     Route: 055
  17. TRELEGY ELLIPTA [Concomitant]
     Active Substance: FLUTICASONE FUROATE\UMECLIDINIUM BROMIDE\VILANTEROL TRIFENATATE
     Indication: Product used for unknown indication
     Dosage: 100 MCG-62.5 MCG-25 MCG POWDER FOR INHALATION?USE 1 INHALATION BY MOUTH ONCE DAILY
     Route: 048

REACTIONS (7)
  - Pulmonary hypertension [Unknown]
  - Atrial fibrillation [Unknown]
  - Asthenia [Unknown]
  - Aortic valve incompetence [Unknown]
  - Heart failure with preserved ejection fraction [Unknown]
  - Mycobacterium avium complex infection [Unknown]
  - Oedema peripheral [Unknown]

NARRATIVE: CASE EVENT DATE: 20250301
